FAERS Safety Report 7120254-0 (Version None)
Quarter: 2010Q4

REPORT INFORMATION
  Report Type: 
  Country: None (occurrence: None)
  Receive Date: 20101123
  Receipt Date: 20101115
  Transmission Date: 20110411
  Serious: Yes (Hospitalization, Other)
  Sender: FDA-Public Use
  Company Number: US-MERCK-0907USA01634

PATIENT
  Age: 47 Year
  Sex: Female
  Weight: 60 kg

DRUGS (7)
  1. FOSAMAX [Suspect]
     Indication: MULTIPLE MYELOMA
     Route: 048
     Dates: start: 19960101
  2. FOSAMAX [Suspect]
     Route: 048
     Dates: start: 19950901, end: 19960501
  3. PREMPRO [Concomitant]
     Indication: HORMONE REPLACEMENT THERAPY
     Route: 065
  4. SYNTHROID [Concomitant]
     Indication: HYPOTHYROIDISM
     Route: 065
  5. ALLEGRA [Concomitant]
     Indication: SEASONAL ALLERGY
     Route: 065
  6. ZOMETA [Suspect]
     Route: 065
     Dates: start: 20020401, end: 20060401
  7. AREDIA [Suspect]
     Route: 065
     Dates: start: 19960501, end: 20020401

REACTIONS (63)
  - ACUTE GRAFT VERSUS HOST DISEASE IN LIVER [None]
  - ALANINE AMINOTRANSFERASE INCREASED [None]
  - ANAEMIA [None]
  - ARTHROPATHY [None]
  - ASPARTATE AMINOTRANSFERASE INCREASED [None]
  - ATELECTASIS [None]
  - BLOOD ALKALINE PHOSPHATASE INCREASED [None]
  - BLOOD CHOLESTEROL INCREASED [None]
  - BONE LESION [None]
  - BREAST CANCER STAGE I [None]
  - CARDIOMEGALY [None]
  - CELLULITIS [None]
  - CLAVICLE FRACTURE [None]
  - COMMINUTED FRACTURE [None]
  - CONSTIPATION [None]
  - CYTOMEGALOVIRUS INFECTION [None]
  - DIARRHOEA [None]
  - DUODENITIS [None]
  - DYSPHAGIA [None]
  - FALL [None]
  - FATIGUE [None]
  - FEMORAL NECK FRACTURE [None]
  - FOLLICULITIS [None]
  - FOOT FRACTURE [None]
  - GASTROOESOPHAGEAL REFLUX DISEASE [None]
  - GINGIVAL BLEEDING [None]
  - HAEMOCHROMATOSIS [None]
  - HERPES ZOSTER DISSEMINATED [None]
  - HIATUS HERNIA [None]
  - HYPOKALAEMIA [None]
  - INCORRECT DOSE ADMINISTERED [None]
  - INTERVERTEBRAL DISC DEGENERATION [None]
  - MULTIPLE MYELOMA [None]
  - MYELOMA RECURRENCE [None]
  - OBESITY [None]
  - ODYNOPHAGIA [None]
  - ORAL TORUS [None]
  - OSTEOLYSIS [None]
  - OSTEOMYELITIS [None]
  - OSTEONECROSIS OF JAW [None]
  - OSTEOPENIA [None]
  - OSTEOPOROSIS [None]
  - PAIN IN EXTREMITY [None]
  - PARAESTHESIA [None]
  - PATHOLOGICAL FRACTURE [None]
  - PERICARDIAL EFFUSION [None]
  - PHLEBOLITH [None]
  - PLEURAL EFFUSION [None]
  - PRURITUS [None]
  - PYREXIA [None]
  - SCOLIOSIS [None]
  - SINUS DISORDER [None]
  - SMEAR CERVIX ABNORMAL [None]
  - SPINAL COMPRESSION FRACTURE [None]
  - SPINAL CORD COMPRESSION [None]
  - SPINAL DISORDER [None]
  - SPINAL OSTEOARTHRITIS [None]
  - STRESS URINARY INCONTINENCE [None]
  - ULCER [None]
  - URETHRAL DISORDER [None]
  - VESTIBULAR DISORDER [None]
  - VULVAL DISORDER [None]
  - WEIGHT DECREASED [None]
